FAERS Safety Report 24276743 (Version 3)
Quarter: 2025Q1

REPORT INFORMATION
  Report Type: Spontaneous
  Country: DE (occurrence: DE)
  Receive Date: 20240903
  Receipt Date: 20250303
  Transmission Date: 20250409
  Serious: Yes (Hospitalization)
  Sender: REGENERON
  Company Number: DE-BAYER-2024A125641

PATIENT
  Sex: Female

DRUGS (2)
  1. EYLEA HD [Suspect]
     Active Substance: AFLIBERCEPT
     Indication: Age-related macular degeneration
     Dates: start: 20240709, end: 20240709
  2. EYLEA HD [Suspect]
     Active Substance: AFLIBERCEPT
     Indication: Choroidal neovascularisation

REACTIONS (4)
  - Injection site pain [Recovering/Resolving]
  - Eye inflammation [Recovering/Resolving]
  - Eye irritation [Recovering/Resolving]
  - Non-infectious endophthalmitis [Recovering/Resolving]

NARRATIVE: CASE EVENT DATE: 20240711
